FAERS Safety Report 8082055-9 (Version None)
Quarter: 2012Q1

REPORT INFORMATION
  Report Type: 
  Country: None (occurrence: None)
  Receive Date: 20120127
  Receipt Date: 20110224
  Transmission Date: 20120608
  Serious: No
  Sender: FDA-Public Use
  Company Number: US-ABBOTT-11P-163-0707916-00

PATIENT
  Sex: Female
  Weight: 81.72 kg

DRUGS (10)
  1. HUMIRA [Suspect]
     Indication: RHEUMATOID ARTHRITIS
     Dates: start: 20110111, end: 20110111
  2. METOPROLOL TARTRATE [Suspect]
     Dosage: IN THE MORNING
     Route: 048
     Dates: start: 20060101, end: 20110216
  3. RANITIDINE [Concomitant]
     Indication: GASTROOESOPHAGEAL REFLUX DISEASE
  4. M.V.I. [Concomitant]
     Indication: VITAMIN SUPPLEMENTATION
  5. METOPROLOL TARTRATE [Suspect]
     Indication: VENTRICULAR EXTRASYSTOLES
     Dosage: 1/2 TABLET AT BEDTIME
     Dates: start: 20060101, end: 20110216
  6. LEVOTHYROXINE SODIUM [Concomitant]
     Indication: HYPOTHYROIDISM
  7. CALCIUM PLUS VITAMIN D [Concomitant]
     Indication: MINERAL SUPPLEMENTATION
  8. AMOXICILLIN [Concomitant]
     Indication: PROPHYLAXIS
     Dosage: PRIOR TO DENTAL APPOINTMENTS
  9. METOPROLOL TARTRATE [Suspect]
     Dates: start: 20110217
  10. SULFASALIZINE [Concomitant]
     Indication: RHEUMATOID ARTHRITIS

REACTIONS (2)
  - ANXIETY [None]
  - VENTRICULAR EXTRASYSTOLES [None]
